FAERS Safety Report 17365834 (Version 1)
Quarter: 2020Q1

REPORT INFORMATION
  Report Type: Report from Study
  Country: US (occurrence: US)
  Receive Date: 20200204
  Receipt Date: 20200204
  Transmission Date: 20200409
  Serious: Yes (Hospitalization)
  Sender: FDA-Public Use
  Company Number: US-EMD SERONO-9143188

PATIENT
  Sex: Male

DRUGS (1)
  1. SEROSTIM [Suspect]
     Active Substance: SOMATROPIN
     Indication: CACHEXIA
     Dosage: SEROSTIM: SEROSTIM 4 MG MULTI DOSE 7 VIAL PACK
     Route: 058
     Dates: start: 20190125

REACTIONS (3)
  - Dysphagia [Unknown]
  - Skin mass [Unknown]
  - Stenosis [Unknown]
